FAERS Safety Report 7752675-7 (Version None)
Quarter: 2011Q3

REPORT INFORMATION
  Report Type: 
  Country: None (occurrence: None)
  Receive Date: 20110913
  Receipt Date: 20110830
  Transmission Date: 20111222
  Serious: Yes (Other)
  Sender: FDA-Public Use
  Company Number: 2011MA012803

PATIENT
  Age: 5 Month
  Sex: Male

DRUGS (1)
  1. PROPRANOLOL HCL [Suspect]
     Indication: HAEMANGIOMA
     Dosage: 2 MG/KG; QD

REACTIONS (10)
  - RESTLESSNESS [None]
  - TOXICITY TO VARIOUS AGENTS [None]
  - BRONCHIAL HYPERREACTIVITY [None]
  - HYPOGLYCAEMIA [None]
  - PERIPHERAL COLDNESS [None]
  - VIRAL INFECTION [None]
  - HYPOTENSION [None]
  - ADRENAL INSUFFICIENCY [None]
  - CONSTIPATION [None]
  - POOR QUALITY SLEEP [None]
